FAERS Safety Report 5310811-6 (Version None)
Quarter: 2007Q2

REPORT INFORMATION
  Report Type: 
  Country: None (occurrence: None)
  Receive Date: 20070428
  Receipt Date: 20070416
  Transmission Date: 20071010
  Serious: Yes (Hospitalization)
  Sender: FDA-Public Use
  Company Number: FR-PFIZER INC-2007007786

PATIENT
  Age: 41 Year
  Sex: Female

DRUGS (3)
  1. EPIRUBICIN HYDROCHLORIDE SOLUTION, STERILE [Suspect]
     Indication: BREAST CANCER FEMALE
     Route: 042
     Dates: start: 20061117, end: 20061117
  2. ENDOXAN [Suspect]
     Indication: BREAST CANCER FEMALE
     Route: 042
     Dates: start: 20061117, end: 20061117
  3. FLUOROURACIL [Suspect]
     Indication: BREAST CANCER FEMALE
     Route: 042
     Dates: start: 20061117, end: 20061117

REACTIONS (1)
  - NEURALGIA [None]
